FAERS Safety Report 4605943-1 (Version None)
Quarter: 2005Q1

REPORT INFORMATION
  Report Type: 
  Country: None (occurrence: None)
  Receive Date: 20050116
  Receipt Date: 20050105
  Transmission Date: 20050727
  Serious: Yes (Other)
  Sender: FDA-Public Use
  Company Number: PHEH2005US00557

PATIENT
  Age: 67 Year
  Sex: Female
  Weight: 69.8 kg

DRUGS (10)
  1. GLEEVEC [Suspect]
     Indication: CHRONIC MYELOID LEUKAEMIA
     Dosage: 800 MG, QD; ORAL (SEE IMAGE)
     Route: 048
     Dates: start: 20040801, end: 20040109
  2. GLEEVEC [Suspect]
     Indication: CHRONIC MYELOID LEUKAEMIA
     Dosage: 800 MG, QD; ORAL (SEE IMAGE)
     Route: 048
     Dates: start: 20041119
  3. PAXIL [Concomitant]
  4. BEXTRA [Concomitant]
  5. TAMBOCOR [Concomitant]
  6. ZOCOR [Concomitant]
  7. PROTONIX [Concomitant]
  8. COENZYME Q10 [Concomitant]
  9. VITAMIN E [Concomitant]
  10. FISH OIL [Concomitant]

REACTIONS (3)
  - DERMATITIS BULLOUS [None]
  - RASH MACULO-PAPULAR [None]
  - RASH PRURITIC [None]
